FAERS Safety Report 4375812-3 (Version None)
Quarter: 2004Q2

REPORT INFORMATION
  Report Type: 
  Country: None (occurrence: None)
  Receive Date: 20040607
  Receipt Date: 20040526
  Transmission Date: 20050107
  Serious: Yes (Other)
  Sender: FDA-Public Use
  Company Number: 2004216002GB

PATIENT
  Age: 56 Year
  Sex: Male
  Weight: 133.3 kg

DRUGS (2)
  1. ZYVOX [Suspect]
     Indication: INFECTION
     Dosage: 600 MG, BID, ORAL
     Route: 048
     Dates: start: 20030401
  2. DOXYCLINE [Concomitant]

REACTIONS (8)
  - FEELING HOT [None]
  - HEADACHE [None]
  - HYPOAESTHESIA [None]
  - LETHARGY [None]
  - PAIN OF SKIN [None]
  - PARAESTHESIA [None]
  - PERIPHERAL COLDNESS [None]
  - SKIN DISCOLOURATION [None]
